FAERS Safety Report 17556075 (Version 2)
Quarter: 2022Q4

REPORT INFORMATION
  Report Type: Spontaneous
  Country: DE (occurrence: DE)
  Receive Date: 20200318
  Receipt Date: 20221209
  Transmission Date: 20230113
  Serious: Yes (Hospitalization)
  Sender: FDA-Public Use
  Company Number: DE-ADRED-04116-01

PATIENT
  Age: 70 Year
  Sex: Male
  Weight: 72 kg

DRUGS (8)
  1. TORSEMIDE [Interacting]
     Active Substance: TORSEMIDE
     Indication: Product used for unknown indication
     Dosage: 20 MILLIGRAM , (0.5-0-0-0)
     Route: 048
  2. EPLERENONE [Interacting]
     Active Substance: EPLERENONE
     Indication: Product used for unknown indication
     Dosage: 25 MILLIGRAM (1-0-0-0   )
     Route: 048
  3. NEBIVOLOL [Interacting]
     Active Substance: NEBIVOLOL
     Indication: Product used for unknown indication
     Dosage: 5 MILLIGRAM (0.5-0-0-0   )
     Route: 048
  4. METOPROLOL [Interacting]
     Active Substance: METOPROLOL
     Indication: Product used for unknown indication
     Dosage: 23.75 MILLIGRAM (1-0-0-0   )
     Route: 048
  5. ENTRESTO [Interacting]
     Active Substance: SACUBITRIL\VALSARTAN
     Indication: Product used for unknown indication
     Dosage: 24MG/26MG (1-0-0-0)
     Route: 048
  6. ATORVASTATIN [Concomitant]
     Active Substance: ATORVASTATIN
     Dosage: 40 MILLIGRAM (40 MG, 0-0-0-0.5 )
     Route: 048
  7. ASPIRIN [Concomitant]
     Active Substance: ASPIRIN
     Dosage: 100 MILLIGRAM (0-1-0-0 )
     Route: 048
  8. MAGNESIUM [Concomitant]
     Active Substance: MAGNESIUM
     Dosage: 400 MILLIGRAM (0-0-1-0   )
     Route: 048

REACTIONS (6)
  - Pain [Unknown]
  - Fracture [Unknown]
  - Fall [Unknown]
  - Femur fracture [Unknown]
  - Labelled drug-drug interaction medication error [Unknown]
  - Hypotension [Unknown]
